FAERS Safety Report 8844475 (Version 1)
Quarter: 2012Q4

REPORT INFORMATION
  Report Type: Spontaneous
  Country: ES (occurrence: None)
  Receive Date: 20121012
  Receipt Date: 20121012
  Transmission Date: 20130627
  Serious: Yes (Other)
  Sender: FDA-Public Use
  Company Number: 1442448

PATIENT
  Age: 74 Year
  Sex: Male
  Weight: 35.38 kg

DRUGS (1)
  1. PACLITAXEL [Suspect]
     Indication: BLADDER CANCER
     Dosage: 6 Mg Milligram(s), , Intravenous
     Route: 042
     Dates: start: 20120619, end: 20120619

REACTIONS (4)
  - Hypotension [None]
  - Flushing [None]
  - Vomiting [None]
  - Hyperhidrosis [None]
